FAERS Safety Report 5717290-5 (Version None)
Quarter: 2008Q2

REPORT INFORMATION
  Report Type: 
  Country: None (occurrence: None)
  Receive Date: 20080423
  Receipt Date: 20080415
  Transmission Date: 20081010
  Serious: Yes (Hospitalization)
  Sender: FDA-Public Use
  Company Number: 20080096

PATIENT
  Age: 84 Year
  Sex: Female

DRUGS (1)
  1. VENOFER [Suspect]
     Indication: HAEMORRHAGIC ANAEMIA
     Dosage: 300 MG INTRAVENOUS
     Route: 042
     Dates: start: 20080124, end: 20080128

REACTIONS (1)
  - PHLEBITIS [None]
